FAERS Safety Report 8034311-8 (Version None)
Quarter: 2012Q1

REPORT INFORMATION
  Report Type: 
  Country: None (occurrence: None)
  Receive Date: 20120110
  Receipt Date: 20120104
  Transmission Date: 20120608
  Serious: Yes (Hospitalization)
  Sender: FDA-Public Use
  Company Number: PHEH2012US000726

PATIENT
  Age: 42 Year
  Sex: Female

DRUGS (2)
  1. GILENYA [Suspect]
     Dosage: UNK UKN, UNK
  2. PAREGORIC [Suspect]
     Dosage: UNK UKN, UNK

REACTIONS (2)
  - DRUG HYPERSENSITIVITY [None]
  - ABDOMINAL HERNIA [None]
